FAERS Safety Report 6954846-6 (Version None)
Quarter: 2010Q3

REPORT INFORMATION
  Report Type: 
  Country: None (occurrence: None)
  Receive Date: 20100830
  Receipt Date: 20100824
  Transmission Date: 20110219
  Serious: Yes (Hospitalization, Other)
  Sender: FDA-Public Use
  Company Number: US-ASTRAZENECA-2009UW19097

PATIENT
  Age: 16129 Day
  Sex: Male
  Weight: 125.2 kg

DRUGS (21)
  1. SEROQUEL [Suspect]
     Indication: BIPOLAR I DISORDER
     Route: 048
     Dates: start: 20070126, end: 20080301
  2. SEROQUEL [Suspect]
     Route: 048
     Dates: start: 20070615
  3. SEROQUEL [Suspect]
     Route: 048
     Dates: start: 20080316
  4. ZYPREXA [Concomitant]
     Dates: start: 20010101
  5. LEXAPRO [Concomitant]
     Dates: start: 20080301, end: 20080801
  6. LAMICTAL [Concomitant]
     Dates: start: 20070126
  7. CARTIA XT [Concomitant]
  8. CARTIA XT [Concomitant]
     Dates: start: 20070801
  9. METOPROLOL [Concomitant]
     Dates: start: 20070801
  10. SOMA [Concomitant]
  11. VALIUM [Concomitant]
     Indication: ANXIETY
     Dosage: ONCE OR TWICE DAILY
     Dates: start: 20020101
  12. VALIUM [Concomitant]
  13. VALIUM [Concomitant]
     Dates: start: 20100701
  14. ASPIRIN [Concomitant]
  15. CYMBALTA [Concomitant]
  16. LORTAB [Concomitant]
     Dosage: 10/650 MG THREE TIMES DAILY
  17. PAXIL [Concomitant]
     Dates: start: 20010101
  18. DEPAKOTE [Concomitant]
     Dates: start: 20010101
  19. DIAZEPAM [Concomitant]
     Dates: start: 20070905
  20. HYDROCODONE BITARTRATE [Concomitant]
     Dosage: 10/650 MG
     Dates: start: 20100701
  21. NEURONTIN [Concomitant]
     Dates: start: 20100701

REACTIONS (16)
  - BLOOD CHOLESTEROL INCREASED [None]
  - BLOOD TRIGLYCERIDES INCREASED [None]
  - DIABETES MELLITUS INADEQUATE CONTROL [None]
  - DIABETIC COMA [None]
  - DIABETIC GASTROPARESIS [None]
  - DIABETIC KETOACIDOSIS [None]
  - DIABETIC NEUROPATHY [None]
  - DYSLIPIDAEMIA [None]
  - GLUCOSE TOLERANCE IMPAIRED [None]
  - HYPERLIPIDAEMIA [None]
  - NEUROPATHY PERIPHERAL [None]
  - OVERDOSE [None]
  - PANCREATITIS [None]
  - PANCREATITIS CHRONIC [None]
  - TYPE 1 DIABETES MELLITUS [None]
  - TYPE 2 DIABETES MELLITUS [None]
